FAERS Safety Report 6140734-4 (Version None)
Quarter: 2009Q2

REPORT INFORMATION
  Report Type: 
  Country: None (occurrence: None)
  Receive Date: 20090402
  Receipt Date: 20090326
  Transmission Date: 20091009
  Serious: Yes (Hospitalization)
  Sender: FDA-Public Use
  Company Number: JP-ASTRAZENECA-2009AP02268

PATIENT
  Age: 59 Year
  Sex: Male

DRUGS (5)
  1. CRESTOR [Suspect]
     Indication: DYSLIPIDAEMIA
     Route: 048
     Dates: start: 20081110, end: 20090324
  2. BASEN OD [Suspect]
     Route: 048
     Dates: start: 20070101
  3. ZYLORIC [Concomitant]
     Dosage: DOSE UNKNOWN
     Route: 048
     Dates: start: 20050101
  4. ADALAT CC [Concomitant]
     Dosage: DOSE UNKNOWN
     Route: 048
     Dates: start: 20080201
  5. OLMETEC [Concomitant]
     Dosage: DOSE UNKNOWN
     Route: 048
     Dates: start: 20081110

REACTIONS (1)
  - HEPATITIS FULMINANT [None]
